FAERS Safety Report 8558515-0 (Version None)
Quarter: 2012Q3

REPORT INFORMATION
  Report Type: 
  Country: None (occurrence: None)
  Receive Date: 20120801
  Receipt Date: 20120727
  Transmission Date: 20120928
  Serious: Yes (Other)
  Sender: FDA-Public Use
  Company Number: US-MSD-1207USA012091

PATIENT

DRUGS (1)
  1. NASONEX [Suspect]
     Route: 045

REACTIONS (1)
  - CATARACT [None]
